FAERS Safety Report 9118085 (Version 2)
Quarter: 2013Q2

REPORT INFORMATION
  Report Type: Spontaneous
  Country: US (occurrence: US)
  Receive Date: 20130209
  Receipt Date: 20130603
  Transmission Date: 20140414
  Serious: Yes (Hospitalization)
  Sender: FDA-Public Use
  Company Number: US-B.I. PHARMACEUTICALS,INC./RIDGEFIELD-2013-BI-03360BP

PATIENT
  Age: 81 Year
  Sex: Female
  Weight: 58.97 kg

DRUGS (9)
  1. PRADAXA [Suspect]
     Indication: ANTICOAGULANT THERAPY
     Dosage: 300 MG
     Route: 048
     Dates: start: 20110915, end: 20111014
  2. PRADAXA [Suspect]
     Indication: ATRIAL FLUTTER
  3. PLAVIX [Concomitant]
     Dosage: 75 MG
     Route: 048
  4. TOPROL XL [Concomitant]
     Dosage: 25 MG
     Route: 048
  5. ZOCOR [Concomitant]
     Dosage: 10 MG
     Route: 048
  6. CERTRIZINE [Concomitant]
     Dosage: 10 MG
     Route: 048
  7. MULTAQ [Concomitant]
     Dosage: 800 MG
     Route: 048
  8. CARTIA XL [Concomitant]
     Dosage: 240 MG
     Route: 048
  9. LISINOPRIL [Concomitant]
     Dosage: 20 MG
     Route: 048

REACTIONS (3)
  - Gastrointestinal haemorrhage [Unknown]
  - Lumbar vertebral fracture [Unknown]
  - Syncope [Unknown]
